FAERS Safety Report 13322381 (Version 1)
Quarter: 2017Q1

REPORT INFORMATION
  Report Type: Spontaneous
  Country: US (occurrence: US)
  Receive Date: 20170309
  Receipt Date: 20170309
  Transmission Date: 20170428
  Serious: No
  Sender: FDA-Public Use
  Company Number: US-PFIZER INC-2017100883

PATIENT
  Age: 60 Year
  Sex: Female
  Weight: 107 kg

DRUGS (1)
  1. LYRICA [Suspect]
     Active Substance: PREGABALIN
     Indication: FIBROMYALGIA
     Dosage: 150 MG, TWICE A DAY (50 MG CAPSULE THREE IN THE MORNING AND THREE AT NIGHT)
     Dates: start: 201702

REACTIONS (1)
  - Tremor [Not Recovered/Not Resolved]
